FAERS Safety Report 10128257 (Version 2)
Quarter: 2014Q2

REPORT INFORMATION
  Report Type: Spontaneous
  Country: US (occurrence: US)
  Receive Date: 20140428
  Receipt Date: 20140508
  Transmission Date: 20141212
  Serious: No
  Sender: FDA-Public Use
  Company Number: US-BIOGENIDEC-2014BI036010

PATIENT
  Age: 40 Year
  Sex: Female

DRUGS (4)
  1. TECFIDERA [Suspect]
     Indication: MULTIPLE SCLEROSIS
     Route: 048
     Dates: start: 20140314, end: 20140320
  2. TECFIDERA [Suspect]
     Indication: MULTIPLE SCLEROSIS
     Route: 048
     Dates: start: 20140321, end: 20140409
  3. TECFIDERA [Suspect]
     Indication: MULTIPLE SCLEROSIS
     Route: 048
     Dates: start: 20140410
  4. ZOLOFT [Concomitant]

REACTIONS (5)
  - Prescribed underdose [Not Recovered/Not Resolved]
  - Abdominal discomfort [Unknown]
  - Flushing [Unknown]
  - Gastric disorder [Unknown]
  - Nasopharyngitis [Not Recovered/Not Resolved]
